FAERS Safety Report 4912169-0 (Version None)
Quarter: 2006Q1

REPORT INFORMATION
  Report Type: 
  Country: None (occurrence: None)
  Receive Date: 20060215
  Receipt Date: 20050826
  Transmission Date: 20060701
  Serious: No
  Sender: FDA-Public Use
  Company Number: US-GLAXOSMITHKLINE-A0571973A

PATIENT
  Age: 87 Year
  Sex: Male

DRUGS (4)
  1. VALTREX [Suspect]
     Dosage: 1TAB THREE TIMES PER DAY
     Route: 048
  2. GLYBURIDE [Concomitant]
     Dosage: 5MG PER DAY
  3. LEVOXYL [Concomitant]
  4. CAPTOPRIL [Concomitant]

REACTIONS (3)
  - BURNING SENSATION [None]
  - PARAESTHESIA [None]
  - RASH [None]
